FAERS Safety Report 11156880 (Version 5)
Quarter: 2016Q4

REPORT INFORMATION
  Report Type: Spontaneous
  Country: US (occurrence: US)
  Receive Date: 20150602
  Receipt Date: 20161205
  Transmission Date: 20170206
  Serious: Yes (Hospitalization, Other)
  Sender: FDA-Public Use
  Company Number: US-ABBVIE-15P-163-1399486-00

PATIENT
  Age: 64 Year
  Sex: Female
  Weight: 98.97 kg

DRUGS (25)
  1. VICODIN [Suspect]
     Active Substance: ACETAMINOPHEN\HYDROCODONE BITARTRATE
     Indication: BACK DISORDER
     Dosage: 10/325MG TAB
     Route: 048
  2. ASPIRIN. [Concomitant]
     Active Substance: ASPIRIN
     Indication: PRODUCT USED FOR UNKNOWN INDICATION
  3. KLONOPIN [Suspect]
     Active Substance: CLONAZEPAM
     Indication: DIZZINESS
     Route: 048
  4. DEPAKOTE [Suspect]
     Active Substance: DIVALPROEX SODIUM
     Indication: PSYCHOTIC DISORDER
     Route: 065
  5. XANAX [Suspect]
     Active Substance: ALPRAZOLAM
     Indication: PRODUCT USED FOR UNKNOWN INDICATION
     Route: 048
  6. XANAX [Suspect]
     Active Substance: ALPRAZOLAM
     Indication: MULTIPLE SCLEROSIS
     Dosage: 0.5 MG 3 TIMES DAILY
     Route: 048
     Dates: start: 201507, end: 2016
  7. TYLENOL EXTRA STRENGTH [Suspect]
     Active Substance: ACETAMINOPHEN
     Indication: PAIN
     Dosage: 2
     Route: 065
  8. POTASSIUM [Suspect]
     Active Substance: POTASSIUM
     Indication: PRODUCT USED FOR UNKNOWN INDICATION
     Route: 065
  9. XANAX [Suspect]
     Active Substance: ALPRAZOLAM
     Indication: VESTIBULAR DISORDER
     Dosage: 0.25MG; 1/2 OR A 0.5MG AT BEDTIME
     Route: 048
  10. HALDOL [Suspect]
     Active Substance: HALOPERIDOL
     Indication: PRODUCT USED FOR UNKNOWN INDICATION
     Route: 065
  11. ACTIVA [Suspect]
     Active Substance: DICLOFENAC SODIUM
     Dosage: DOSE INCREASED
     Route: 065
  12. LOSARTAN. [Concomitant]
     Active Substance: LOSARTAN
     Indication: PRODUCT USED FOR UNKNOWN INDICATION
  13. HYDROCODONE [Concomitant]
     Active Substance: HYDROCODONE
     Indication: NEURALGIA
  14. VICODIN [Suspect]
     Active Substance: ACETAMINOPHEN\HYDROCODONE BITARTRATE
     Route: 065
  15. XANAX [Suspect]
     Active Substance: ALPRAZOLAM
     Indication: MUSCLE RELAXANT THERAPY
     Dosage: 2.5-3; 1MG TABLETS
     Route: 048
     Dates: end: 20150629
  16. METOPROLOL TARTRATE. [Concomitant]
     Active Substance: METOPROLOL TARTRATE
     Indication: PRODUCT USED FOR UNKNOWN INDICATION
  17. VICODIN [Suspect]
     Active Substance: ACETAMINOPHEN\HYDROCODONE BITARTRATE
     Indication: SPINAL FUSION SURGERY
     Dosage: 5MG TWICE A DAY
     Route: 048
  18. XANAX [Suspect]
     Active Substance: ALPRAZOLAM
     Indication: ANXIETY
     Route: 048
  19. KLONOPIN [Suspect]
     Active Substance: CLONAZEPAM
     Indication: ANXIETY
  20. CLONIDINE. [Concomitant]
     Active Substance: CLONIDINE
     Indication: BLOOD PRESSURE INCREASED
     Dosage: BLOOD PRESSURE OVER 200/100
  21. DEPAKOTE [Suspect]
     Active Substance: DIVALPROEX SODIUM
     Indication: PROPHYLAXIS
  22. SODIUM CHLORIDE. [Suspect]
     Active Substance: SODIUM CHLORIDE
     Indication: PRODUCT USED FOR UNKNOWN INDICATION
     Route: 065
  23. ACTIVA [Suspect]
     Active Substance: DICLOFENAC SODIUM
     Indication: PRODUCT USED FOR UNKNOWN INDICATION
     Route: 065
  24. ZANTAC [Concomitant]
     Active Substance: RANITIDINE HYDROCHLORIDE
     Indication: GASTRIC DISORDER
     Dosage: 2 TO 3 TIMES A DAY
  25. DECADRON [Concomitant]
     Active Substance: DEXAMETHASONE
     Indication: PRODUCT USED FOR UNKNOWN INDICATION

REACTIONS (57)
  - Atrial fibrillation [Unknown]
  - Incontinence [Unknown]
  - Spinal disorder [Unknown]
  - Insomnia [Unknown]
  - Fall [Unknown]
  - Hospitalisation [Unknown]
  - Back pain [Not Recovered/Not Resolved]
  - Pain [Unknown]
  - Hyperventilation [Unknown]
  - Dysstasia [Unknown]
  - Drug dose omission [Unknown]
  - Malaise [Unknown]
  - Hospitalisation [Unknown]
  - Myocardial infarction [Unknown]
  - Mobility decreased [Unknown]
  - Atrophy [Unknown]
  - Vomiting [Unknown]
  - Body height decreased [Unknown]
  - Fear [Unknown]
  - Cerebrospinal fluid circulation disorder [Unknown]
  - Drug effect decreased [Unknown]
  - Feeling abnormal [Unknown]
  - Drug detoxification [Unknown]
  - Blood pressure fluctuation [Unknown]
  - Cerebral disorder [Unknown]
  - Drug effect decreased [Not Recovered/Not Resolved]
  - Fatigue [Unknown]
  - Withdrawal syndrome [Unknown]
  - Product physical consistency issue [Unknown]
  - Back pain [Unknown]
  - Deep vein thrombosis [Not Recovered/Not Resolved]
  - Nervous system disorder [Unknown]
  - Syncope [Unknown]
  - Diarrhoea [Unknown]
  - Coordination abnormal [Unknown]
  - Dysphagia [Not Recovered/Not Resolved]
  - Drug dependence [Unknown]
  - Apnoea [Unknown]
  - Drug ineffective [Unknown]
  - Blood pressure increased [Not Recovered/Not Resolved]
  - Left ventricular hypertrophy [Recovering/Resolving]
  - Tremor [Unknown]
  - Nervous system disorder [Unknown]
  - Abasia [Not Recovered/Not Resolved]
  - Neoplasm [Unknown]
  - Injury [Unknown]
  - Product tampering [Unknown]
  - Dysphagia [Unknown]
  - Drug ineffective [Not Recovered/Not Resolved]
  - Liver injury [Unknown]
  - Crying [Unknown]
  - Aphasia [Unknown]
  - Weight increased [Not Recovered/Not Resolved]
  - Blood test abnormal [Unknown]
  - Cardiac disorder [Unknown]
  - Aspiration [Unknown]
  - Balance disorder [Unknown]

NARRATIVE: CASE EVENT DATE: 201402
